FAERS Safety Report 4631390-2 (Version None)
Quarter: 2005Q2

REPORT INFORMATION
  Report Type: 
  Country: None (occurrence: None)
  Receive Date: 20050407
  Receipt Date: 20030129
  Transmission Date: 20051028
  Serious: No
  Sender: FDA-Public Use
  Company Number: 5974

PATIENT
  Age: 64 Year
  Sex: Female

DRUGS (1)
  1. PAMIDRONATE DISODIUM [Suspect]
     Dosage: 43 MG FREQ IV
     Route: 042

REACTIONS (1)
  - CONJUNCTIVITIS [None]
